FAERS Safety Report 9659291 (Version 2)
Quarter: 2013Q4

REPORT INFORMATION
  Report Type: Spontaneous
  Country: DE (occurrence: DE)
  Receive Date: 20131031
  Receipt Date: 20131114
  Transmission Date: 20140711
  Serious: Yes (Other)
  Sender: FDA-Public Use
  Company Number: DE-ASTRAZENECA-2013SE79043

PATIENT
  Sex: Male

DRUGS (4)
  1. BRILIQUE [Suspect]
     Route: 048
  2. ASS 100 [Suspect]
     Route: 065
  3. DABIGATRAN [Suspect]
     Route: 065
  4. CLOPIDOGREL [Suspect]
     Route: 065

REACTIONS (2)
  - Neoplasm malignant [Unknown]
  - Haemorrhage urinary tract [Unknown]
